FAERS Safety Report 6651350-X (Version None)
Quarter: 2010Q1

REPORT INFORMATION
  Report Type: 
  Country: None (occurrence: None)
  Receive Date: 20100325
  Receipt Date: 20100317
  Transmission Date: 20100710
  Serious: Yes (Other)
  Sender: FDA-Public Use
  Company Number: B0640691A

PATIENT
  Sex: Female

DRUGS (1)
  1. NIQUITIN CQ 2MG LOZENGE, MINT [Suspect]
     Indication: DRUG USE FOR UNKNOWN INDICATION
     Dosage: 8LOZ PER DAY
     Route: 002
     Dates: start: 20090501

REACTIONS (3)
  - FLATULENCE [None]
  - LIVER FUNCTION TEST ABNORMAL [None]
  - LIVER INJURY [None]
